FAERS Safety Report 4782371-X (Version None)
Quarter: 2005Q3

REPORT INFORMATION
  Report Type: 
  Country: None (occurrence: None)
  Receive Date: 20050929
  Receipt Date: 20050927
  Transmission Date: 20060218
  Serious: Yes (Other)
  Sender: FDA-Public Use
  Company Number: JP-JNJFOC-20050905848

PATIENT
  Age: 33 Year
  Sex: Female

DRUGS (2)
  1. TAVANIC [Suspect]
     Indication: PNEUMONIA
     Route: 048
  2. BROMHEXINE [Concomitant]
     Indication: COUGH
     Route: 048

REACTIONS (1)
  - PULMONARY FIBROSIS [None]
